FAERS Safety Report 9307940 (Version 11)
Quarter: 2014Q2

REPORT INFORMATION
  Report Type: Report from Study
  Country: US (occurrence: US)
  Receive Date: 20130524
  Receipt Date: 20140617
  Transmission Date: 20141212
  Serious: Yes (Other)
  Sender: FDA-Public Use
  Company Number: US-BAYER-2013-062216

PATIENT
  Age: 76 Year
  Sex: Female

DRUGS (8)
  1. NEXAVAR [Suspect]
     Indication: HEPATIC CANCER
     Dosage: 200 MG, QOD
     Route: 048
     Dates: start: 20130313
  2. NEXAVAR [Suspect]
     Indication: HEPATIC CANCER
     Dosage: 400 MG A DAY
     Route: 048
  3. NEXAVAR [Suspect]
     Indication: HEPATIC CANCER
     Dosage: 200 MG, QD (DECREASED DOSE) AND THEN 200 MG EVERY DAY
     Route: 048
  4. NEXAVAR [Suspect]
     Indication: HEPATIC CANCER
     Dosage: 200 MG, BID
     Route: 048
     Dates: start: 20131030
  5. NEXAVAR [Suspect]
     Indication: HEPATIC CANCER
     Dosage: 200 MG, QOD
     Route: 048
  6. NEXAVAR [Suspect]
     Indication: HEPATIC CANCER
     Dosage: 800 MG, QOD
     Route: 048
  7. NEXAVAR [Suspect]
     Indication: HEPATIC CANCER
     Dosage: 200 MG, QOD
     Route: 048
  8. OXYGEN [Concomitant]

REACTIONS (19)
  - Syncope [None]
  - Feeling abnormal [None]
  - Dizziness [None]
  - Amnesia [None]
  - Drug dose omission [None]
  - Pain in extremity [Not Recovered/Not Resolved]
  - Skin exfoliation [None]
  - Tooth loss [None]
  - Tooth disorder [None]
  - Device failure [None]
  - Pain in extremity [None]
  - Tooth loss [None]
  - Dry skin [None]
  - Pain in extremity [None]
  - Drug dose omission [None]
  - Drug dose omission [None]
  - Palmoplantar keratoderma [None]
  - Abdominal pain [None]
  - Lung disorder [None]
